FAERS Safety Report 7311808-7 (Version None)
Quarter: 2011Q1

REPORT INFORMATION
  Report Type: 
  Country: None (occurrence: None)
  Receive Date: 20110224
  Receipt Date: 20110214
  Transmission Date: 20110831
  Serious: Yes (Death, Life-Threatening)
  Sender: FDA-Public Use
  Company Number: NL-GENZYME-CLOF-1001152

PATIENT
  Sex: Male
  Weight: 73.9 kg

DRUGS (20)
  1. CYTOSINE ARABINOSIDE [Suspect]
     Indication: ACUTE MYELOID LEUKAEMIA
     Dosage: 190 MG, QD
     Route: 042
     Dates: start: 20100707, end: 20100716
  2. PARACETAMOL [Concomitant]
     Indication: PYREXIA
     Dosage: 500 MG, UNK
     Dates: start: 20100810, end: 20100824
  3. FOLINIC ACID [Concomitant]
     Indication: TOXOPLASMOSIS
     Dosage: UNK
     Dates: end: 20100824
  4. SULFADIAZINE [Concomitant]
     Indication: PRODUCT USED FOR UNKNOWN INDICATION
     Dosage: UNK
     Dates: end: 20100823
  5. ZAVEDOS [Suspect]
     Indication: ACUTE MYELOID LEUKAEMIA
     Dosage: 19 MG, D 1, 3, + 5
     Route: 042
     Dates: start: 20100707, end: 20100711
  6. CIPROXIN [Concomitant]
     Indication: PROPHYLAXIS
     Dosage: 500 MG, BID
     Route: 048
     Dates: start: 20100810, end: 20100820
  7. SPIRONOLACTONE [Concomitant]
     Indication: PLEURAL EFFUSION
  8. PLATELETS, CONCENTRATED [Concomitant]
     Indication: PRODUCT USED FOR UNKNOWN INDICATION
     Dosage: UNK
     Dates: start: 20100708, end: 20100824
  9. VANCOMYCIN [Concomitant]
     Indication: BACTERAEMIA
     Dosage: 1250 MG, UNK
     Route: 042
     Dates: start: 20100814, end: 20100817
  10. ACICLOVIR [Concomitant]
     Indication: PROPHYLAXIS
  11. SPIRONOLACTONE [Concomitant]
     Indication: OEDEMA
  12. EVOLTRA [Suspect]
     Indication: ACUTE MYELOID LEUKAEMIA
     Dosage: 28 MG, QD
     Route: 042
     Dates: start: 20100708, end: 20100712
  13. CASPOFUNGIN [Concomitant]
     Indication: CAECITIS
  14. CASPOFUNGIN [Concomitant]
     Indication: FUNGAL TEST POSITIVE
     Dosage: 750 MG, TID
     Route: 042
     Dates: start: 20100812, end: 20100821
  15. ACICLOVIR [Concomitant]
     Indication: HERPES SIMPLEX
     Dosage: UNK
     Dates: start: 20100820, end: 20100821
  16. PANTAZOL [Concomitant]
     Indication: PROPHYLAXIS
     Dosage: UNK
     Dates: start: 20100810, end: 20100824
  17. KALIUMCHLORIDE [Concomitant]
     Indication: BLOOD POTASSIUM DECREASED
     Dosage: 20 MMOL/L, TID
     Route: 048
     Dates: start: 20100817, end: 20100822
  18. DI-ADRESON F [Concomitant]
     Indication: HISTIOCYTOSIS HAEMATOPHAGIC
     Dosage: UNK
     Dates: start: 20100819, end: 20100822
  19. SPIRONOLACTONE [Concomitant]
     Indication: ASCITES
     Dosage: UNK
     Dates: end: 20100820
  20. FIBRINOGEN [Concomitant]
     Indication: PRODUCT USED FOR UNKNOWN INDICATION
     Dosage: UNK
     Dates: start: 20100820, end: 20100821

REACTIONS (7)
  - PANCYTOPENIA [None]
  - INFECTION [None]
  - CAECITIS [None]
  - CEREBRAL HAEMORRHAGE [None]
  - CEREBRAL FUNGAL INFECTION [None]
  - FEBRILE NEUTROPENIA [None]
  - PYREXIA [None]
